FAERS Safety Report 24210154 (Version 1)
Quarter: 2024Q3

REPORT INFORMATION
  Report Type: Spontaneous
  Country: IT (occurrence: IT)
  Receive Date: 20240814
  Receipt Date: 20240814
  Transmission Date: 20241017
  Serious: Yes (Life-Threatening, Other)
  Sender: GLAND PHARMA
  Company Number: IT-GLANDPHARMA-IT-2024GLNLIT00619

PATIENT
  Age: 13 Year
  Sex: Male

DRUGS (13)
  1. DEXAMETHASONE SODIUM PHOSPHATE [Suspect]
     Active Substance: DEXAMETHASONE PHOSPHATE\DEXAMETHASONE SODIUM PHOSPHATE
     Indication: Hodgkin^s disease
     Route: 065
  2. DEXAMETHASONE SODIUM PHOSPHATE [Suspect]
     Active Substance: DEXAMETHASONE PHOSPHATE\DEXAMETHASONE SODIUM PHOSPHATE
     Route: 065
  3. CYTARABINE [Suspect]
     Active Substance: CYTARABINE
     Indication: Hodgkin^s disease
     Route: 065
  4. CISPLATIN [Suspect]
     Active Substance: CISPLATIN
     Indication: Hodgkin^s disease
     Route: 065
  5. CISPLATIN [Suspect]
     Active Substance: CISPLATIN
     Route: 065
  6. DOXORUBICIN HYDROCHLORIDE [Suspect]
     Active Substance: DOXORUBICIN HYDROCHLORIDE
     Indication: Hodgkin^s disease
     Route: 065
  7. VINCRISTINE [Suspect]
     Active Substance: VINCRISTINE
     Indication: Hodgkin^s disease
     Route: 065
  8. ETOPOSIDE [Suspect]
     Active Substance: ETOPOSIDE
     Indication: Hodgkin^s disease
     Route: 065
  9. PREDNISONE [Suspect]
     Active Substance: PREDNISONE
     Indication: Hodgkin^s disease
     Route: 065
  10. CYCLOPHOSPHAMIDE [Suspect]
     Active Substance: CYCLOPHOSPHAMIDE
     Indication: Hodgkin^s disease
     Route: 065
  11. DACARBAZINE [Suspect]
     Active Substance: DACARBAZINE
     Indication: Hodgkin^s disease
     Route: 065
  12. BRENTUXIMAB VEDOTIN [Suspect]
     Active Substance: BRENTUXIMAB VEDOTIN
     Indication: Hodgkin^s disease refractory
     Route: 042
  13. BENDAMUSTINE [Suspect]
     Active Substance: BENDAMUSTINE
     Indication: Hodgkin^s disease refractory
     Route: 042

REACTIONS (6)
  - Thrombocytopenia [Recovered/Resolved]
  - Neutropenia [Recovered/Resolved]
  - Anaemia [Recovered/Resolved]
  - Drug-induced liver injury [Recovered/Resolved]
  - Drug ineffective [Unknown]
  - Product use in unapproved indication [Unknown]
